FAERS Safety Report 20085011 (Version 2)
Quarter: 2022Q1

REPORT INFORMATION
  Report Type: Spontaneous
  Country: SG (occurrence: None)
  Receive Date: 20211118
  Receipt Date: 20220128
  Transmission Date: 20220423
  Serious: Yes (Other)
  Sender: FDA-Public Use
  Company Number: SG-ROCHE-2957307

PATIENT
  Age: 57 Year
  Sex: Male

DRUGS (22)
  1. POLATUZUMAB VEDOTIN [Suspect]
     Active Substance: POLATUZUMAB VEDOTIN
     Indication: Diffuse large B-cell lymphoma
     Route: 065
     Dates: start: 20210517, end: 20210729
  2. VENETOCLAX [Suspect]
     Active Substance: VENETOCLAX
     Indication: Diffuse large B-cell lymphoma
     Route: 065
     Dates: start: 20210218, end: 20210423
  3. RITUXIMAB [Suspect]
     Active Substance: RITUXIMAB
     Indication: Diffuse large B-cell lymphoma
     Route: 065
     Dates: start: 20210218, end: 20210423
  4. RITUXIMAB [Suspect]
     Active Substance: RITUXIMAB
     Route: 065
     Dates: start: 20210619, end: 20210709
  5. RITUXIMAB [Suspect]
     Active Substance: RITUXIMAB
     Route: 065
     Dates: start: 20210517, end: 20210729
  6. RITUXIMAB [Suspect]
     Active Substance: RITUXIMAB
     Route: 065
     Dates: start: 20210712, end: 20210729
  7. RITUXIMAB [Suspect]
     Active Substance: RITUXIMAB
     Route: 065
     Dates: start: 20200820, end: 20210120
  8. DEXAMETHASONE [Suspect]
     Active Substance: DEXAMETHASONE
     Indication: Diffuse large B-cell lymphoma
     Route: 065
     Dates: start: 20210218, end: 20210423
  9. CYTARABINE [Suspect]
     Active Substance: CYTARABINE
     Indication: Diffuse large B-cell lymphoma
     Route: 065
  10. CISPLATIN [Suspect]
     Active Substance: CISPLATIN
     Indication: Diffuse large B-cell lymphoma
     Route: 065
  11. BENDAMUSTINE [Suspect]
     Active Substance: BENDAMUSTINE
     Indication: Diffuse large B-cell lymphoma
     Route: 065
     Dates: start: 20210517, end: 20210729
  12. IFOSFAMIDE [Suspect]
     Active Substance: IFOSFAMIDE
     Indication: Diffuse large B-cell lymphoma
     Route: 065
     Dates: start: 20210619, end: 20210709
  13. CARBOPLATIN [Suspect]
     Active Substance: CARBOPLATIN
     Indication: Diffuse large B-cell lymphoma
     Route: 065
  14. ETOPOSIDE [Suspect]
     Active Substance: ETOPOSIDE
     Indication: Diffuse large B-cell lymphoma
     Route: 065
     Dates: start: 20210619, end: 20210709
  15. ETOPOSIDE [Suspect]
     Active Substance: ETOPOSIDE
     Route: 065
     Dates: start: 20200820, end: 20210120
  16. GEMCITABINE [Suspect]
     Active Substance: GEMCITABINE
     Indication: Diffuse large B-cell lymphoma
     Route: 065
     Dates: start: 20210712, end: 20210729
  17. OXALIPLATIN [Suspect]
     Active Substance: OXALIPLATIN
     Indication: Diffuse large B-cell lymphoma
     Route: 065
  18. LENALIDOMIDE [Suspect]
     Active Substance: LENALIDOMIDE
     Indication: Diffuse large B-cell lymphoma
     Route: 065
     Dates: start: 20210712, end: 20210729
  19. PREDNISONE [Suspect]
     Active Substance: PREDNISONE
     Indication: Diffuse large B-cell lymphoma
     Route: 065
     Dates: start: 20200820, end: 20210120
  20. VINCRISTINE [Suspect]
     Active Substance: VINCRISTINE
     Indication: Diffuse large B-cell lymphoma
     Route: 065
     Dates: start: 20200820, end: 20210120
  21. CYCLOPHOSPHAMIDE [Suspect]
     Active Substance: CYCLOPHOSPHAMIDE
     Indication: Diffuse large B-cell lymphoma
     Route: 065
     Dates: start: 20200820, end: 20210120
  22. DOXORUBICIN [Suspect]
     Active Substance: DOXORUBICIN
     Indication: Diffuse large B-cell lymphoma
     Route: 065
     Dates: start: 20200820, end: 20210120

REACTIONS (6)
  - Laparotomy [Unknown]
  - Lymphoma [Unknown]
  - Disease progression [Unknown]
  - Blood lactate dehydrogenase increased [Unknown]
  - Drug ineffective [Unknown]
  - Off label use [Unknown]

NARRATIVE: CASE EVENT DATE: 20210821
